FAERS Safety Report 21506516 (Version 1)
Quarter: 2022Q4

REPORT INFORMATION
  Report Type: Spontaneous
  Country: US (occurrence: US)
  Receive Date: 20221026
  Receipt Date: 20221026
  Transmission Date: 20230112
  Serious: No
  Sender: FDA-Public Use
  Company Number: US-SANOFI-01325292

PATIENT
  Age: 70 Year
  Sex: Male

DRUGS (2)
  1. LANTUS SOLOSTAR [Suspect]
     Active Substance: INSULIN GLARGINE
     Dosage: 10 UNITS QD
     Dates: start: 20221016
  2. NOVOLOG [Concomitant]
     Active Substance: INSULIN ASPART
     Dosage: 1 U

REACTIONS (1)
  - Product dispensing error [Unknown]
